FAERS Safety Report 8856431 (Version 1)
Quarter: 2012Q4

REPORT INFORMATION
  Report Type: Spontaneous
  Country: CA (occurrence: None)
  Receive Date: 20121018
  Receipt Date: 20121018
  Transmission Date: 20130627
  Serious: Yes (Other)
  Sender: FDA-Public Use
  Company Number: DSU-2012-08124

PATIENT
  Age: 45 Year
  Sex: Female

DRUGS (3)
  1. OLMETEC [Suspect]
     Indication: DRUG USE FOR UNKNOWN INDICATION
     Dosage: unknown, Per oral
     Route: 048
  2. PROZAC [Suspect]
     Indication: DRUG USE FOR UNKNOWN INDICATION
  3. REBIF [Suspect]
     Indication: DRUG USE FOR UNKNOWN INDICATION
     Dosage: (44 mcg, 3 every 1 week), subcutaneous
     Route: 058

REACTIONS (6)
  - Hypersensitivity [None]
  - Oedema peripheral [None]
  - Optic neuritis [None]
  - Pruritus [None]
  - Urticaria [None]
  - White blood cell count abnormal [None]
